FAERS Safety Report 9051246 (Version 2)
Quarter: 2013Q1

REPORT INFORMATION
  Report Type: Report from Study
  Country: CN (occurrence: CN)
  Receive Date: 20130206
  Receipt Date: 20130307
  Transmission Date: 20140127
  Serious: Yes (Hospitalization)
  Sender: FDA-Public Use
  Company Number: CN-ASTELLAS-2012JP012209

PATIENT
  Age: 36 None
  Sex: Female
  Weight: 51.2 kg

DRUGS (5)
  1. TACROLIMUS [Suspect]
     Indication: NEPHROTIC SYNDROME
     Dosage: 0.5 MG, BID
     Route: 048
     Dates: start: 20121205, end: 20130115
  2. TACROLIMUS [Suspect]
     Dosage: 1.5 MG, BID
     Route: 048
     Dates: start: 20120221, end: 20121204
  3. TACROLIMUS [Suspect]
     Dosage: 1 MG, BID
     Route: 048
     Dates: start: 20130116, end: 20130118
  4. TACROLIMUS [Suspect]
     Dosage: 0.5 MG, BID
     Route: 048
     Dates: start: 20130119
  5. METHYLPREDNISOLONE [Concomitant]
     Indication: NEPHROTIC SYNDROME
     Route: 042

REACTIONS (2)
  - Upper respiratory tract infection [Recovered/Resolved]
  - Nephropathy [Recovered/Resolved]
